FAERS Safety Report 8775428 (Version 1)
Quarter: 2012Q4

REPORT INFORMATION
  Report Type: 
  Country: GB (occurrence: GB)
  Receive Date: 20120910
  Receipt Date: 20120910
  Transmission Date: 20130627
  Serious: Yes (Disabling, Other)
  Sender: FDA-Public Use
  Company Number: GB-ASTRAZENECA-2012SE69651

PATIENT
  Age: 51 Year
  Sex: Male
  Weight: 82.6 kg

DRUGS (4)
  1. OMEPRAZOLE [Suspect]
     Indication: REFLUX GASTRITIS
     Route: 048
     Dates: start: 20100101
  2. GAVISCON [Concomitant]
  3. SETTLERS/BEECHAMS ANTACID [Concomitant]
  4. SODIUM BICARBONATE [Concomitant]

REACTIONS (15)
  - Asthenia [Unknown]
  - Neck pain [Unknown]
  - Arthralgia [Unknown]
  - Bronchospasm [Unknown]
  - Constipation [Unknown]
  - Dizziness [Unknown]
  - Dry mouth [Unknown]
  - Malaise [Unknown]
  - Headache [Unknown]
  - Insomnia [Unknown]
  - Myalgia [Unknown]
  - Vertigo [Unknown]
  - Abdominal pain upper [Unknown]
  - Dysgeusia [Unknown]
  - Vomiting [Unknown]
